FAERS Safety Report 6775446-7 (Version None)
Quarter: 2010Q2

REPORT INFORMATION
  Report Type: 
  Country: None (occurrence: None)
  Receive Date: 20100617
  Receipt Date: 20100614
  Transmission Date: 20101027
  Serious: Yes (Hospitalization, Disabling, Other)
  Sender: FDA-Public Use
  Company Number: US-MERCK-0805USA00171

PATIENT
  Age: 60 Year
  Sex: Female
  Weight: 75 kg

DRUGS (9)
  1. FOSAMAX [Suspect]
     Indication: OSTEOPOROSIS
     Route: 048
     Dates: start: 20000101, end: 20031201
  2. FOSAMAX [Suspect]
     Route: 048
     Dates: start: 20031201, end: 20060401
  3. PEPCID [Concomitant]
     Route: 065
  4. CELEXA [Concomitant]
     Indication: DEPRESSION
     Route: 065
     Dates: start: 19990101
  5. ADDERALL TABLETS [Concomitant]
     Indication: ATTENTION DEFICIT/HYPERACTIVITY DISORDER
     Route: 065
     Dates: start: 19990101
  6. MELATONIN [Concomitant]
     Route: 048
  7. CYTOMEL [Concomitant]
     Route: 065
  8. THYROID [Concomitant]
     Indication: HYPOTHYROIDISM
     Route: 065
  9. PREVACID [Concomitant]
     Route: 065
     Dates: start: 19820101

REACTIONS (53)
  - ABDOMINAL DISCOMFORT [None]
  - ABDOMINAL WALL DISORDER [None]
  - ABSCESS [None]
  - ADVERSE DRUG REACTION [None]
  - ANXIETY [None]
  - BONE DENSITY DECREASED [None]
  - CARDIAC DISORDER [None]
  - CARDIOVASCULAR DISORDER [None]
  - CATARACT OPERATION [None]
  - CLOSTRIDIUM DIFFICILE COLITIS [None]
  - DENTAL CARIES [None]
  - DENTAL FISTULA [None]
  - DEPRESSION [None]
  - DEVICE FAILURE [None]
  - DEVICE RELATED INFECTION [None]
  - DIZZINESS [None]
  - DRUG HYPERSENSITIVITY [None]
  - DRY MOUTH [None]
  - EXOSTOSIS [None]
  - FATIGUE [None]
  - FISTULA [None]
  - GINGIVAL BLEEDING [None]
  - GINGIVAL DISORDER [None]
  - GINGIVAL ULCERATION [None]
  - HEAD INJURY [None]
  - HEADACHE [None]
  - HERPES VIRUS INFECTION [None]
  - HORMONE LEVEL ABNORMAL [None]
  - HYPERTENSION [None]
  - HYPOAESTHESIA [None]
  - IMPAIRED HEALING [None]
  - INCISION SITE CELLULITIS [None]
  - INTERVERTEBRAL DISC DEGENERATION [None]
  - JOINT ANKYLOSIS [None]
  - MYOSITIS [None]
  - NAUSEA [None]
  - ORAL PAIN [None]
  - OSTEOMYELITIS [None]
  - OSTEONECROSIS OF JAW [None]
  - OVERDOSE [None]
  - PERIODONTITIS [None]
  - POSTOPERATIVE WOUND INFECTION [None]
  - SINUSITIS [None]
  - STRESS URINARY INCONTINENCE [None]
  - SUDDEN DEATH [None]
  - SYNCOPE [None]
  - SYNOVIAL CYST [None]
  - TEMPOROMANDIBULAR JOINT SYNDROME [None]
  - TOOTH ABSCESS [None]
  - TRIGEMINAL NEURALGIA [None]
  - TRISMUS [None]
  - VERTIGO POSITIONAL [None]
  - WOUND INFECTION STAPHYLOCOCCAL [None]
